FAERS Safety Report 7681621-X (Version None)
Quarter: 2011Q3

REPORT INFORMATION
  Report Type: 
  Country: None (occurrence: None)
  Receive Date: 20110812
  Receipt Date: 20110805
  Transmission Date: 20111222
  Serious: Yes (Hospitalization)
  Sender: FDA-Public Use
  Company Number: PHEH2011US00860

PATIENT

DRUGS (15)
  1. HYPERSAL [Concomitant]
  2. PHOSNA K [Concomitant]
  3. TOBI [Suspect]
     Indication: CYSTIC FIBROSIS
     Dosage: 300 MG, BID
     Dates: end: 20110716
  4. FERROUS SULFATE TAB [Concomitant]
  5. PEG [Concomitant]
  6. ALBUTEROL SULFATE AUTOHALER [Concomitant]
  7. MEPHYTON [Concomitant]
  8. PRERACID [Concomitant]
  9. PULMOZYME [Concomitant]
  10. VITAMIN A [Concomitant]
  11. URSODIOL [Concomitant]
  12. CALCIUM CARBONATE [Concomitant]
  13. ASCORBIC ACID [Concomitant]
  14. AQUADEKEAP [Concomitant]
  15. CREON [Concomitant]

REACTIONS (1)
  - INFECTIVE PULMONARY EXACERBATION OF CYSTIC FIBROSIS [None]
